FAERS Safety Report 24343297 (Version 1)
Quarter: 2024Q3

REPORT INFORMATION
  Report Type: Spontaneous
  Country: NG (occurrence: NG)
  Receive Date: 20240920
  Receipt Date: 20240920
  Transmission Date: 20241016
  Serious: Yes (Life-Threatening, Other)
  Sender: PFIZER
  Company Number: NG-PFIZER INC-PV202400120887

PATIENT
  Age: 30 Year
  Sex: Female

DRUGS (1)
  1. MISOPROSTOL [Suspect]
     Active Substance: MISOPROSTOL
     Indication: Haemorrhage prophylaxis
     Dosage: 600 UG
     Route: 060

REACTIONS (3)
  - Anaphylactic reaction [Recovered/Resolved]
  - Off label use [Unknown]
  - Off label use [Unknown]
